FAERS Safety Report 9065994 (Version 1)
Quarter: 2013Q1

REPORT INFORMATION
  Report Type: Spontaneous
  Country: GB (occurrence: GB)
  Receive Date: 20130214
  Receipt Date: 20130214
  Transmission Date: 20140127
  Serious: Yes (Death, Hospitalization, Other)
  Sender: FDA-Public Use
  Company Number: GB-ROXANE LABORATORIES, INC.-2013-RO-00238RO

PATIENT
  Age: 57 Year
  Sex: Female

DRUGS (3)
  1. MORPHINE [Suspect]
     Indication: BREAKTHROUGH PAIN
     Dosage: 600 MG
     Route: 048
  2. MORPHINE SULFATE EXTENDED RELEASE [Suspect]
     Indication: CANCER PAIN
     Dosage: 1200 MG
  3. FENTANYL [Suspect]
     Indication: CANCER PAIN
     Route: 062

REACTIONS (5)
  - Death [Fatal]
  - Inadequate analgesia [Recovered/Resolved]
  - Constipation [Unknown]
  - Pruritus [Unknown]
  - Sedation [Unknown]
